FAERS Safety Report 6282324-9 (Version None)
Quarter: 2009Q3

REPORT INFORMATION
  Report Type: 
  Country: None (occurrence: None)
  Receive Date: 20090722
  Receipt Date: 20090722
  Transmission Date: 20100115
  Serious: Yes (Other)
  Sender: FDA-Public Use
  Company Number: None

PATIENT
  Sex: Male
  Weight: 71 kg

DRUGS (12)
  1. TAXOTERE [Suspect]
     Indication: GASTRIC CANCER
     Dosage: 135 Q12D IV DRIP
     Route: 041
     Dates: start: 20090708, end: 20090708
  2. TAXOTERE [Suspect]
     Dates: start: 20090708, end: 20090708
  3. ATIVAN [Concomitant]
  4. CIALIS [Concomitant]
  5. COMPAZINE [Concomitant]
  6. DECADRON [Concomitant]
  7. FERROUS SULFATE TAB [Concomitant]
  8. REGLAN [Concomitant]
  9. OMEPRAZOLE [Concomitant]
  10. OXYCODONE [Concomitant]
  11. PRAVASTATIN [Concomitant]
  12. VITAMIN D [Concomitant]

REACTIONS (5)
  - CHEST DISCOMFORT [None]
  - COUGH [None]
  - DYSPNOEA [None]
  - FLUSHING [None]
  - HYPOXIA [None]
